FAERS Safety Report 10059707 (Version 3)
Quarter: 2014Q2

REPORT INFORMATION
  Report Type: Spontaneous
  Country: US (occurrence: US)
  Receive Date: 20140404
  Receipt Date: 20140423
  Transmission Date: 20141212
  Serious: Yes (Other)
  Sender: FDA-Public Use
  Company Number: US-009507513-1404USA000953

PATIENT
  Sex: Female

DRUGS (1)
  1. NASONEX [Suspect]
     Dosage: 1 SPRAY INTO EACH NOSTRIL TWICE A DAY
     Route: 045

REACTIONS (3)
  - Eye operation [Unknown]
  - Product quality issue [Unknown]
  - Drug dose omission [Unknown]
